FAERS Safety Report 5872941-X (Version None)
Quarter: 2008Q3

REPORT INFORMATION
  Report Type: 
  Country: None (occurrence: None)
  Receive Date: 20080903
  Receipt Date: 20080818
  Transmission Date: 20090109
  Serious: Yes (Other)
  Sender: FDA-Public Use
  Company Number: CHPA2008US12907

PATIENT
  Age: 50 Year
  Sex: Female

DRUGS (2)
  1. NODOZ (NCH) (CAFFEINE) CAPLET [Suspect]
     Indication: SOMNOLENCE
     Dosage: 200 MG, ONCE/SINGLE, ORAL
     Route: 048
     Dates: start: 20080714
  2. DRUG THERAPY NOS (DRUG THERAPY NOS) [Concomitant]

REACTIONS (1)
  - BLOOD PRESSURE INCREASED [None]
